FAERS Safety Report 5933179-0 (Version None)
Quarter: 2008Q4

REPORT INFORMATION
  Report Type: 
  Country: None (occurrence: None)
  Receive Date: 20081023
  Receipt Date: 20060706
  Transmission Date: 20090506
  Serious: Yes (Disabling, Other)
  Sender: FDA-Public Use
  Company Number: 2006AL002234

PATIENT
  Age: 57 Year
  Sex: Female

DRUGS (2)
  1. IBUPROFEN TABLETS [Suspect]
     Indication: BACK PAIN
     Dosage: 400 MG; TID; PO
     Route: 048
     Dates: start: 20060421, end: 20060505
  2. LEVOTHYROXINE SODIUM [Concomitant]

REACTIONS (2)
  - DIPLOPIA [None]
  - VITH NERVE PARALYSIS [None]
